FAERS Safety Report 20286480 (Version 1)
Quarter: 2022Q1

REPORT INFORMATION
  Report Type: Spontaneous
  Country: US (occurrence: US)
  Receive Date: 20220103
  Receipt Date: 20220103
  Transmission Date: 20220423
  Serious: No
  Sender: FDA-Public Use
  Company Number: US-Accord-211266

PATIENT
  Age: 55 Year
  Sex: Female
  Weight: 86.18 kg

DRUGS (1)
  1. SERTRALINE HYDROCHLORIDE [Suspect]
     Active Substance: SERTRALINE HYDROCHLORIDE
     Indication: Depression
     Dosage: STRENGTH-100MG, ROUND TABLETS

REACTIONS (7)
  - Withdrawal syndrome [Unknown]
  - Illness [Unknown]
  - Dizziness [Unknown]
  - Hyperhidrosis [Unknown]
  - Nausea [Unknown]
  - Anxiety [Unknown]
  - Product substitution issue [Unknown]
